FAERS Safety Report 7939004-0 (Version None)
Quarter: 2011Q4

REPORT INFORMATION
  Report Type: 
  Country: None (occurrence: None)
  Receive Date: 20111124
  Receipt Date: 20111121
  Transmission Date: 20120403
  Serious: Yes (Other)
  Sender: FDA-Public Use
  Company Number: JP-PFIZER INC-2011284773

PATIENT
  Age: 66 Year
  Sex: Female

DRUGS (6)
  1. LYRICA [Suspect]
     Indication: PAIN IN EXTREMITY
     Dosage: 75 MG, 2X/DAY
     Route: 048
     Dates: start: 20111024, end: 20111112
  2. SIMVASTATIN [Concomitant]
     Dosage: UNK
  3. ASPIRIN [Concomitant]
     Dosage: UNK
  4. LEVOFLOXACIN [Concomitant]
     Indication: CYSTITIS
     Dosage: UNK
     Dates: start: 20111028
  5. NORVASC [Concomitant]
     Dosage: UNK
  6. MUCOSTA [Concomitant]
     Indication: CYSTITIS
     Dosage: UNK
     Dates: start: 20111028

REACTIONS (5)
  - ASTHENIA [None]
  - NAUSEA [None]
  - CHEST DISCOMFORT [None]
  - FEELING ABNORMAL [None]
  - BLOOD PRESSURE INCREASED [None]
